FAERS Safety Report 13917195 (Version 1)
Quarter: 2017Q3

REPORT INFORMATION
  Report Type: Spontaneous
  Country: GB (occurrence: GB)
  Receive Date: 20170829
  Receipt Date: 20170829
  Transmission Date: 20171127
  Serious: Yes (Hospitalization)
  Sender: FDA-Public Use
  Company Number: GB-PFIZER INC-2017369218

PATIENT
  Age: 53 Year
  Sex: Male

DRUGS (2)
  1. PHENYTOIN. [Suspect]
     Active Substance: PHENYTOIN
     Indication: EPILEPSY
     Dosage: 200 MG, 2X/DAY
  2. PHENYTOIN. [Suspect]
     Active Substance: PHENYTOIN
     Dosage: 300 MG, 2X/DAY

REACTIONS (2)
  - Toxicity to various agents [Unknown]
  - Drug prescribing error [Unknown]
